FAERS Safety Report 8214933 (Version 2)
Quarter: 2015Q2

REPORT INFORMATION
  Report Type: Spontaneous
  Country: US (occurrence: US)
  Receive Date: 20111030
  Receipt Date: 20150626
  Transmission Date: 20150821
  Serious: Yes (Other)
  Sender: FDA-Public Use
  Company Number: US-AMGEN-USASP2011025842

PATIENT
  Age: 73 Year
  Sex: Female

DRUGS (1)
  1. ENBREL [Suspect]
     Active Substance: ETANERCEPT
     Indication: PSORIATIC ARTHROPATHY
     Dosage: 50 MG, QWK
     Route: 065
     Dates: start: 2006, end: 2015

REACTIONS (21)
  - Amnesia [Not Recovered/Not Resolved]
  - Impaired healing [Recovered/Resolved]
  - Thinking abnormal [Unknown]
  - Aphasia [Unknown]
  - Hernia [Not Recovered/Not Resolved]
  - Finger deformity [Not Recovered/Not Resolved]
  - Tearfulness [Not Recovered/Not Resolved]
  - Fall [Recovered/Resolved]
  - Narcolepsy [Not Recovered/Not Resolved]
  - Abdominal injury [Not Recovered/Not Resolved]
  - Melanocytic naevus [Not Recovered/Not Resolved]
  - Paranoia [Recovered/Resolved]
  - Arthralgia [Not Recovered/Not Resolved]
  - Head injury [Not Recovered/Not Resolved]
  - Multiple fractures [Recovered/Resolved]
  - Injection site pain [Not Recovered/Not Resolved]
  - Gait disturbance [Not Recovered/Not Resolved]
  - Psoriatic arthropathy [Unknown]
  - Musculoskeletal disorder [Not Recovered/Not Resolved]
  - Emotional disorder [Not Recovered/Not Resolved]
  - Foot deformity [Not Recovered/Not Resolved]

NARRATIVE: CASE EVENT DATE: 2015
